FAERS Safety Report 9021533 (Version 3)
Quarter: 2013Q1

REPORT INFORMATION
  Report Type: Spontaneous
  Country: SE (occurrence: SE)
  Receive Date: 20130119
  Receipt Date: 20130222
  Transmission Date: 20140127
  Serious: Yes (Other)
  Sender: FDA-Public Use
  Company Number: SE-AMGEN-SWESP2013002352

PATIENT
  Age: 83 Year
  Sex: Female
  Weight: 57 kg

DRUGS (10)
  1. PROLIA [Suspect]
     Indication: OSTEOPOROSIS
     Dosage: 60 MG, UNK
     Route: 058
     Dates: start: 20111114, end: 20120515
  2. CALCICHEW D3 [Concomitant]
     Dosage: 500 MG, 1TABLET X 2
     Route: 048
  3. CITODON                            /00116401/ [Concomitant]
     Indication: PAIN
     Dosage: 500 MG, QD
  4. CITODON                            /00116401/ [Concomitant]
     Dosage: 30 MG, UNK
  5. ALVEDON [Concomitant]
     Indication: PAIN
  6. TROMBYL [Concomitant]
     Indication: BLOOD PRESSURE
     Dosage: 75 MG, UNK
     Route: 048
  7. ATACAND [Concomitant]
     Indication: BLOOD PRESSURE
     Dosage: 16 MG, UNK
     Route: 048
  8. METOPROLOL [Concomitant]
     Indication: BLOOD PRESSURE
     Dosage: 25 MG, UNK
  9. ATENOLOL [Concomitant]
     Dosage: 25 MG, QD
     Route: 048
  10. CITALOPRAM [Concomitant]
     Dosage: 20 MG, QD
     Route: 048

REACTIONS (10)
  - Skeletal injury [Unknown]
  - Intervertebral disc compression [Unknown]
  - Spinal cord compression [Unknown]
  - Back pain [Unknown]
  - Body height decreased [Unknown]
  - Dyspnoea [Unknown]
  - Pain [Unknown]
  - Spinal deformity [Unknown]
  - Bone density decreased [Unknown]
  - Drug ineffective [Unknown]
